FAERS Safety Report 4796620-5 (Version None)
Quarter: 2005Q3

REPORT INFORMATION
  Report Type: 
  Country: None (occurrence: None)
  Receive Date: 20050916
  Receipt Date: 20050330
  Transmission Date: 20060218
  Serious: Yes (Other)
  Sender: FDA-Public Use
  Company Number: US-JNJFOC-20041201055

PATIENT
  Age: 19 Year
  Sex: Female

DRUGS (1)
  1. TOPAMAX [Suspect]
     Indication: MIGRAINE PROPHYLAXIS
     Dosage: 1 IN 1 DAY, ORAL
     Route: 048

REACTIONS (5)
  - CONJUNCTIVITIS [None]
  - CONTRAST MEDIA REACTION [None]
  - INTRAOCULAR PRESSURE INCREASED [None]
  - MYOPIA [None]
  - VISUAL ACUITY REDUCED [None]
